FAERS Safety Report 9785629 (Version 1)
Quarter: 2013Q4

REPORT INFORMATION
  Report Type: Spontaneous
  Country: GB (occurrence: GB)
  Receive Date: 20131227
  Receipt Date: 20131227
  Transmission Date: 20140711
  Serious: Yes (Other)
  Sender: FDA-Public Use
  Company Number: GB-ELI_LILLY_AND_COMPANY-GB201312006109

PATIENT
  Age: 40 Year
  Sex: Female
  Weight: 85 kg

DRUGS (5)
  1. DULOXETINE HYDROCHLORIDE [Suspect]
     Indication: DEPRESSION
     Dosage: 60 MG, UNKNOWN
     Route: 048
     Dates: start: 201211, end: 201312
  2. DIAZEPAM [Concomitant]
     Dosage: UNK UNK, QID
     Route: 065
  3. QUETIAPINE [Concomitant]
     Dosage: 350 MG, UNKNOWN
     Route: 065
  4. VENTOLIN                           /00139502/ [Concomitant]
     Dosage: UNK UNK, UNKNOWN
     Route: 065
  5. BUDESONIDE [Concomitant]
     Dosage: UNK UNK, UNKNOWN
     Route: 065

REACTIONS (1)
  - Asthma [Recovered/Resolved]
